FAERS Safety Report 5917488-7 (Version None)
Quarter: 2008Q4

REPORT INFORMATION
  Report Type: 
  Country: None (occurrence: None)
  Receive Date: 20081010
  Receipt Date: 20081010
  Transmission Date: 20090506
  Serious: Yes (Other)
  Sender: FDA-Public Use
  Company Number: None

PATIENT
  Age: 25 Year
  Sex: Female
  Weight: 65.7716 kg

DRUGS (2)
  1. TRAZODONE HCL [Suspect]
     Indication: DEPRESSION
     Dosage: 150 MG DAILY PO
     Route: 048
     Dates: start: 20081009, end: 20081009
  2. PROZAC [Concomitant]

REACTIONS (4)
  - EXTRAPYRAMIDAL DISORDER [None]
  - JOINT STIFFNESS [None]
  - ORAL DISORDER [None]
  - TONGUE DISORDER [None]
